FAERS Safety Report 7320160-2 (Version None)
Quarter: 2011Q1

REPORT INFORMATION
  Report Type: 
  Country: None (occurrence: None)
  Receive Date: 20110228
  Receipt Date: 20110217
  Transmission Date: 20110831
  Serious: Yes (Hospitalization)
  Sender: FDA-Public Use
  Company Number: JP-ASTRAZENECA-2011SE09967

PATIENT
  Age: 33265 Day
  Sex: Female

DRUGS (8)
  1. LEXOTAN [Concomitant]
     Route: 048
  2. NORVASC [Concomitant]
     Route: 048
  3. BACTRIM [Suspect]
     Indication: URINARY TRACT INFECTION
     Dosage: TWO TIMES A DAY
     Route: 048
     Dates: start: 20110203, end: 20110208
  4. BLOPRESS [Suspect]
     Indication: HYPERTENSION
     Route: 048
     Dates: start: 20110208, end: 20110212
  5. COUMADIN [Concomitant]
     Route: 048
  6. LANSOX [Concomitant]
     Route: 048
  7. TOTALIP [Concomitant]
     Route: 048
  8. ZYLORIC [Concomitant]
     Route: 048

REACTIONS (3)
  - ASTHENIA [None]
  - RENAL FAILURE ACUTE [None]
  - HYPERKALAEMIA [None]
